FAERS Safety Report 7579355-5 (Version None)
Quarter: 2011Q2

REPORT INFORMATION
  Report Type: 
  Country: None (occurrence: None)
  Receive Date: 20110628
  Receipt Date: 20110622
  Transmission Date: 20111010
  Serious: Yes (Hospitalization)
  Sender: FDA-Public Use
  Company Number: BR-BRISTOL-MYERS SQUIBB COMPANY-15854052

PATIENT
  Age: 67 Year
  Sex: Male

DRUGS (3)
  1. INDAPAMIDE [Concomitant]
     Route: 048
     Dates: start: 20090101
  2. ONGLYZA [Suspect]
     Indication: DIABETES MELLITUS
     Route: 048
     Dates: start: 20100101
  3. PLAVIX [Concomitant]
     Route: 048
     Dates: start: 20090101

REACTIONS (1)
  - VENOUS OCCLUSION [None]
